FAERS Safety Report 6683384-3 (Version None)
Quarter: 2010Q2

REPORT INFORMATION
  Report Type: 
  Country: None (occurrence: None)
  Receive Date: 20100415
  Receipt Date: 20100406
  Transmission Date: 20101027
  Serious: Yes (Other)
  Sender: FDA-Public Use
  Company Number: FI-WYE-H14531910

PATIENT
  Sex: Female

DRUGS (6)
  1. SOMAC [Suspect]
     Dosage: 40 MG EVERY 1 TOT
     Route: 048
     Dates: start: 20100401, end: 20100401
  2. LEKOVIT CA [Concomitant]
  3. LIPITOR [Concomitant]
  4. PLAVIX [Concomitant]
  5. SELOKEN [Concomitant]
  6. COZAAR [Concomitant]

REACTIONS (4)
  - BLOOD PRESSURE INCREASED [None]
  - HEART RATE INCREASED [None]
  - LARYNGEAL OEDEMA [None]
  - PHARYNGEAL OEDEMA [None]
